FAERS Safety Report 7734838-X (Version None)
Quarter: 2011Q3

REPORT INFORMATION
  Report Type: 
  Country: None (occurrence: None)
  Receive Date: 20110907
  Receipt Date: 20110831
  Transmission Date: 20111222
  Serious: Yes (Life-Threatening, Hospitalization, Other)
  Sender: FDA-Public Use
  Company Number: JP-PFIZER INC-2008091609

PATIENT
  Sex: Female
  Weight: 48.5 kg

DRUGS (3)
  1. AZULFIDINE [Suspect]
     Indication: RHEUMATOID ARTHRITIS
     Dosage: UNK
     Dates: start: 20080216, end: 20080312
  2. MUCOSTA [Concomitant]
  3. EPPI-KA-ZYUTU-TO [Concomitant]

REACTIONS (2)
  - PLEURAL EFFUSION [None]
  - DRUG RASH WITH EOSINOPHILIA AND SYSTEMIC SYMPTOMS [None]
